FAERS Safety Report 9712881 (Version 2)
Quarter: 2014Q2

REPORT INFORMATION
  Report Type: Spontaneous
  Country: US (occurrence: US)
  Receive Date: 20131126
  Receipt Date: 20140510
  Transmission Date: 20141212
  Serious: No
  Sender: FDA-Public Use
  Company Number: US-BRISTOL-MYERS SQUIBB COMPANY-19341320

PATIENT
  Age: 51 Year
  Sex: Female
  Weight: 106.57 kg

DRUGS (2)
  1. BYDUREON [Suspect]
     Indication: TYPE 2 DIABETES MELLITUS
     Dosage: NO OF INJ 4,THERAPY ON MAY13
  2. KOMBIGLYZE XR [Concomitant]
     Dosage: 1DF:5-1000MG UNIT NOS

REACTIONS (2)
  - Injection site reaction [Unknown]
  - Abscess sterile [Unknown]
